FAERS Safety Report 4736059-1 (Version None)
Quarter: 2005Q3

REPORT INFORMATION
  Report Type: 
  Country: None (occurrence: None)
  Receive Date: 20050805
  Receipt Date: 20050728
  Transmission Date: 20060218
  Serious: Yes (Hospitalization, Other)
  Sender: FDA-Public Use
  Company Number: US-MERCK-0508USA00007

PATIENT
  Age: 41 Year
  Sex: Female
  Weight: 73 kg

DRUGS (6)
  1. VIOXX [Suspect]
     Indication: ARTHRITIS
     Route: 048
     Dates: start: 19990101, end: 20020101
  2. VIOXX [Suspect]
     Indication: CREST SYNDROME
     Route: 048
     Dates: start: 19990101, end: 20020101
  3. VIOXX [Suspect]
     Route: 048
     Dates: start: 19990101, end: 20020101
  4. VIOXX [Suspect]
     Route: 048
     Dates: start: 19990101, end: 20020101
  5. AVALIDE [Concomitant]
     Route: 065
     Dates: start: 19990101
  6. PAXIL [Concomitant]
     Route: 065
     Dates: start: 19990101

REACTIONS (26)
  - ANXIETY [None]
  - ASTHMA [None]
  - BIPOLAR DISORDER [None]
  - BLOOD CHOLESTEROL INCREASED [None]
  - BLOOD DISORDER [None]
  - CARDIAC FAILURE CONGESTIVE [None]
  - CHEST PAIN [None]
  - CHRONIC OBSTRUCTIVE PULMONARY DISEASE [None]
  - DEEP VEIN THROMBOSIS [None]
  - DEPRESSION [None]
  - DIABETES MELLITUS [None]
  - DRUG HYPERSENSITIVITY [None]
  - DYSPNOEA [None]
  - GLAUCOMA [None]
  - HAEMATOCHEZIA [None]
  - HAEMATOMA [None]
  - HYPERTENSION [None]
  - MENTAL DISORDER [None]
  - MYOCARDIAL INFARCTION [None]
  - OBESITY [None]
  - OVERDOSE [None]
  - PANIC DISORDER [None]
  - PULMONARY EMBOLISM [None]
  - SCHIZOPHRENIA [None]
  - SLEEP APNOEA SYNDROME [None]
  - SWELLING [None]
